FAERS Safety Report 7057875-X (Version None)
Quarter: 2010Q4

REPORT INFORMATION
  Report Type: 
  Country: None (occurrence: None)
  Receive Date: 20101022
  Receipt Date: 20101012
  Transmission Date: 20110411
  Serious: Yes (Other)
  Sender: FDA-Public Use
  Company Number: FR-ELI_LILLY_AND_COMPANY-FR201004008286

PATIENT
  Sex: Female
  Weight: 63.2 kg

DRUGS (2)
  1. ATOMOXETINE HCL [Suspect]
     Indication: ATTENTION DEFICIT/HYPERACTIVITY DISORDER
     Dosage: 40 MG, DAILY (1/D)
     Route: 048
     Dates: start: 20100420, end: 20100426
  2. NORLEVO [Concomitant]
     Indication: CONTRACEPTION
     Dosage: 1.5 MG, UNK

REACTIONS (2)
  - BRADYKINESIA [None]
  - DRUG EXPOSURE DURING PREGNANCY [None]
